FAERS Safety Report 5096541-7 (Version None)
Quarter: 2006Q3

REPORT INFORMATION
  Report Type: 
  Country: None (occurrence: None)
  Receive Date: 20060830
  Receipt Date: 20060818
  Transmission Date: 20061208
  Serious: Yes (Death, Other)
  Sender: FDA-Public Use
  Company Number: 2006078130

PATIENT
  Age: 86 Year
  Sex: Female
  Weight: 110 kg

DRUGS (2)
  1. LYRICA [Suspect]
     Indication: PAIN
     Dosage: 600 MG (300 MG, 2 IN 1 D); ORAL
     Route: 048
     Dates: start: 20060501, end: 20060508
  2. INSULIN [Concomitant]

REACTIONS (4)
  - ACCIDENTAL OVERDOSE [None]
  - DIPLOPIA [None]
  - SOMNOLENCE [None]
  - SPEECH DISORDER [None]
